FAERS Safety Report 12596386 (Version 1)
Quarter: 2016Q3

REPORT INFORMATION
  Report Type: Spontaneous
  Country: GB (occurrence: GB)
  Receive Date: 20160726
  Receipt Date: 20160726
  Transmission Date: 20161109
  Serious: Yes (Death, Other)
  Sender: FDA-Public Use
  Company Number: GB-BAXALTA-2016BLT005168

PATIENT
  Sex: Male

DRUGS (1)
  1. HEMOFIL [Suspect]
     Active Substance: ANTIHEMOPHILIC FACTOR HUMAN
     Indication: HAEMOPHILIA
     Dosage: UNK
     Route: 065
     Dates: start: 1976

REACTIONS (3)
  - Death [Fatal]
  - HIV infection [Unknown]
  - Hepatitis C [Unknown]

NARRATIVE: CASE EVENT DATE: 19931008
